FAERS Safety Report 7399410-2 (Version None)
Quarter: 2011Q1

REPORT INFORMATION
  Report Type: 
  Country: None (occurrence: None)
  Receive Date: 20110328
  Receipt Date: 20110317
  Transmission Date: 20110831
  Serious: Yes (Other)
  Sender: FDA-Public Use
  Company Number: 2009SP040575

PATIENT
  Age: 46 Year
  Sex: Female
  Weight: 60 kg

DRUGS (2)
  1. IMPLANON [Suspect]
     Indication: PRODUCT USED FOR UNKNOWN INDICATION
     Dosage: 1 DF; ; SC
     Route: 058
     Dates: start: 20080420
  2. IMPLANON [Suspect]
     Indication: PRODUCT USED FOR UNKNOWN INDICATION
     Dosage: 1 DF; ; SC
     Route: 058
     Dates: start: 20050222, end: 20080420

REACTIONS (7)
  - SURGICAL PROCEDURE REPEATED [None]
  - SURGICAL FAILURE [None]
  - HYPOAESTHESIA [None]
  - PARAESTHESIA [None]
  - VAGINAL HAEMORRHAGE [None]
  - DEVICE DISLOCATION [None]
  - CARPAL TUNNEL SYNDROME [None]
